FAERS Safety Report 6120319-6 (Version None)
Quarter: 2009Q1

REPORT INFORMATION
  Report Type: 
  Country: None (occurrence: None)
  Receive Date: 20090312
  Receipt Date: 20090304
  Transmission Date: 20090719
  Serious: Yes (Hospitalization)
  Sender: FDA-Public Use
  Company Number: ADR0812009

PATIENT
  Sex: Female

DRUGS (3)
  1. SIMVASTATIN [Suspect]
     Dosage: ORAL
     Route: 048
  2. INSULIN [Concomitant]
  3. BLOOD PRESSURE MEDICATION (NOT SPECIFIED) [Concomitant]

REACTIONS (1)
  - PALPITATIONS [None]
